FAERS Safety Report 18204278 (Version 1)
Quarter: 2020Q3

REPORT INFORMATION
  Report Type: Spontaneous
  Country: IT (occurrence: IT)
  Receive Date: 20200827
  Receipt Date: 20200827
  Transmission Date: 20201103
  Serious: Yes (Hospitalization)
  Sender: FDA-Public Use
  Company Number: IT-PFIZER INC-2020329040

PATIENT
  Age: 71 Year
  Sex: Female
  Weight: 80 kg

DRUGS (8)
  1. FENTANYL CITRATE. [Suspect]
     Active Substance: FENTANYL CITRATE
     Indication: ANAESTHESIA
     Dosage: 1 DF, AS NEEDED
     Route: 042
     Dates: start: 20190812, end: 20190812
  2. ESMERON [Suspect]
     Active Substance: ROCURONIUM BROMIDE
     Indication: ANAESTHESIA
     Dosage: 1 DF, AS NEEDED
     Route: 042
     Dates: start: 20190812, end: 20190812
  3. NORMOTHEN [Concomitant]
     Active Substance: DOXAZOSIN MESYLATE
     Indication: HYPERTENSION
     Route: 048
  4. DROPAXIN [Concomitant]
     Indication: ANTIDEPRESSANT THERAPY
     Dosage: 1 DF, 1X/DAY
     Route: 048
  5. SEVOFLURANE. [Suspect]
     Active Substance: SEVOFLURANE
     Indication: ANAESTHESIA
     Dosage: 1 DF, AS NEEDED
     Route: 042
     Dates: start: 20190812, end: 20190812
  6. ULTIVA [Suspect]
     Active Substance: REMIFENTANIL HYDROCHLORIDE
     Indication: ANAESTHESIA
     Dosage: 1 DF, AS NEEDED
     Route: 042
     Dates: start: 20190812, end: 20190812
  7. PROPOFOL. [Suspect]
     Active Substance: PROPOFOL
     Indication: ANAESTHESIA
     Dosage: 1 DF, AS NEEDED
     Route: 042
     Dates: start: 20190812, end: 20190812
  8. SUCCINILCOLINA CLORURO BIOLOGICI ITALIA LABORATORIES [Suspect]
     Active Substance: SUCCINYLCHOLINE CHLORIDE
     Indication: ANAESTHESIA
     Dosage: 1 DF, AS NEEDED
     Route: 042
     Dates: start: 20190812, end: 20190812

REACTIONS (1)
  - Bronchospasm [Recovering/Resolving]

NARRATIVE: CASE EVENT DATE: 20190812
